FAERS Safety Report 13925167 (Version 1)
Quarter: 2017Q3

REPORT INFORMATION
  Report Type: Spontaneous
  Country: US (occurrence: US)
  Receive Date: 20170831
  Receipt Date: 20170831
  Transmission Date: 20171127
  Serious: Yes (Death, Other)
  Sender: FDA-Public Use
  Company Number: US-MYLANLABS-2017M1053840

PATIENT
  Age: 58 Year
  Sex: Female

DRUGS (8)
  1. BEVACIZUMAB. [Concomitant]
     Active Substance: BEVACIZUMAB
     Indication: PAPILLARY SEROUS ENDOMETRIAL CARCINOMA
     Dosage: 10MG/KG, DAYS 1 AND 15
     Route: 065
  2. PACLITAXEL. [Concomitant]
     Active Substance: PACLITAXEL
     Dosage: 80MG/M2, DAYS 1,8 AND 15
     Route: 065
  3. DOXORUBICIN [Concomitant]
     Active Substance: DOXORUBICIN
     Indication: PAPILLARY SEROUS ENDOMETRIAL CARCINOMA
     Dosage: 40MG/M2, DAY 1, 6 CYCLES
     Route: 065
     Dates: end: 201508
  4. CARBOPLATIN. [Suspect]
     Active Substance: CARBOPLATIN
     Indication: PAPILLARY SEROUS ENDOMETRIAL CARCINOMA
     Dosage: AUC 6
     Route: 065
     Dates: end: 201409
  5. PACLITAXEL. [Concomitant]
     Active Substance: PACLITAXEL
     Indication: PAPILLARY SEROUS ENDOMETRIAL CARCINOMA
     Dosage: 175MG/M2 EVERY 21 DAYS
     Dates: end: 201409
  6. OLAPARIB. [Suspect]
     Active Substance: OLAPARIB
     Indication: PAPILLARY SEROUS ENDOMETRIAL CARCINOMA
     Dosage: FOR APPORXIMATELY 6 MONTHS
     Route: 048
     Dates: end: 201606
  7. GEMCITABINE [Concomitant]
     Active Substance: GEMCITABINE\GEMCITABINE HYDROCHLORIDE
     Indication: PAPILLARY SEROUS ENDOMETRIAL CARCINOMA
     Dosage: 800MG/M2 EVERY 21 DAYS; 2 CYCLES
     Route: 065
  8. BEVACIZUMAB. [Concomitant]
     Active Substance: BEVACIZUMAB
     Dosage: 15MG/M2; EVERY 21 DAYS; 2 CYCLES
     Route: 065

REACTIONS (1)
  - Drug resistance [Unknown]
